FAERS Safety Report 6999894-5 (Version None)
Quarter: 2010Q3

REPORT INFORMATION
  Report Type: 
  Country: None (occurrence: None)
  Receive Date: 20100920
  Receipt Date: 20090721
  Transmission Date: 20110219
  Serious: Yes (Other)
  Sender: FDA-Public Use
  Company Number: US-ASTRAZENECA-2007UW06189

PATIENT
  Sex: Female

DRUGS (7)
  1. SEROQUEL [Suspect]
     Route: 048
     Dates: start: 20050512
  2. LEVOTHYROXINE [Concomitant]
     Dates: start: 20050408
  3. ABILIFY [Concomitant]
     Dosage: 10 TO 20 MG
     Dates: start: 20050408
  4. PREMPRO [Concomitant]
     Dosage: 0.3/1 MG EZ-DL
     Dates: start: 20050512
  5. LAMICTAL [Concomitant]
     Dates: start: 20050512
  6. TRICOR [Concomitant]
     Dates: start: 20050512
  7. DEPAKOTE [Concomitant]
     Dosage: 26052005
     Dates: start: 20050526

REACTIONS (3)
  - DIABETES MELLITUS [None]
  - DIABETIC KETOACIDOSIS [None]
  - PANCREATITIS [None]
